FAERS Safety Report 8919143 (Version 3)
Quarter: 2016Q2

REPORT INFORMATION
  Report Type: Spontaneous
  Country: GB (occurrence: GB)
  Receive Date: 20121121
  Receipt Date: 20160530
  Transmission Date: 20160815
  Serious: Yes (Death, Hospitalization)
  Sender: FDA-Public Use
  Company Number: GB-JNJFOC-20121107600

PATIENT
  Age: 42 Year
  Sex: Female

DRUGS (3)
  1. METHOTREXATE [Concomitant]
     Active Substance: METHOTREXATE
     Indication: PSORIASIS
     Route: 065
     Dates: start: 201107, end: 201208
  2. REMICADE [Suspect]
     Active Substance: INFLIXIMAB
     Indication: PSORIASIS
     Dosage: 4 INFUSIONS
     Route: 042
     Dates: start: 20120911, end: 20120911
  3. REMICADE [Suspect]
     Active Substance: INFLIXIMAB
     Indication: PSORIASIS
     Route: 042
     Dates: start: 20120616

REACTIONS (5)
  - Hepatic neoplasm [Not Recovered/Not Resolved]
  - Sepsis [Fatal]
  - Autoimmune hepatitis [Fatal]
  - Hepatic failure [Fatal]
  - Neutropenia [Fatal]
